FAERS Safety Report 12419976 (Version 2)
Quarter: 2016Q3

REPORT INFORMATION
  Report Type: Spontaneous
  Country: US (occurrence: US)
  Receive Date: 20160531
  Receipt Date: 20160803
  Transmission Date: 20161109
  Serious: No
  Sender: FDA-Public Use
  Company Number: US-ELI_LILLY_AND_COMPANY-US201605008914

PATIENT
  Age: 64 Year
  Sex: Male
  Weight: 104 kg

DRUGS (6)
  1. CIALIS [Suspect]
     Active Substance: TADALAFIL
     Indication: BENIGN PROSTATIC HYPERPLASIA
     Dosage: 5 MG, QD
     Route: 048
     Dates: start: 20110721
  2. CIALIS [Suspect]
     Active Substance: TADALAFIL
     Indication: PSYCHOSEXUAL DISORDER
  3. CIALIS [Suspect]
     Active Substance: TADALAFIL
     Indication: ERECTILE DYSFUNCTION
  4. CIALIS [Suspect]
     Active Substance: TADALAFIL
     Indication: TESTICULAR FAILURE
  5. AXIRON [Suspect]
     Active Substance: TESTOSTERONE
     Indication: BLOOD TESTOSTERONE DECREASED
     Dosage: 4 PUMPS, QD
     Route: 061
     Dates: start: 20120905
  6. AXIRON [Suspect]
     Active Substance: TESTOSTERONE
     Indication: TESTICULAR FAILURE

REACTIONS (1)
  - Prostatic specific antigen increased [Recovered/Resolved]

NARRATIVE: CASE EVENT DATE: 201603
